FAERS Safety Report 24139982 (Version 4)
Quarter: 2024Q4

REPORT INFORMATION
  Report Type: Spontaneous
  Country: AT (occurrence: AT)
  Receive Date: 20240726
  Receipt Date: 20241114
  Transmission Date: 20250114
  Serious: Yes (Other)
  Sender: ROCHE
  Company Number: None

PATIENT
  Age: 60 Year
  Sex: Female
  Weight: 80 kg

DRUGS (13)
  1. RITUXIMAB [Suspect]
     Active Substance: RITUXIMAB
     Indication: Diffuse large B-cell lymphoma
     Dosage: DAY 1
     Route: 042
     Dates: start: 20230201
  2. RITUXIMAB [Suspect]
     Active Substance: RITUXIMAB
     Dosage: LAST DOSE PRIOR THE EVENT
     Route: 042
  3. VINCRISTINE [Suspect]
     Active Substance: VINCRISTINE
     Indication: Diffuse large B-cell lymphoma
     Dosage: LAST DOSE PRIOR TO THE EVENT WAS 2 MG, DAY 1
     Route: 042
     Dates: start: 20230201
  4. VINCRISTINE [Suspect]
     Active Substance: VINCRISTINE
     Dosage: 2 MG, DAY 1
     Route: 042
  5. VINCRISTINE [Suspect]
     Active Substance: VINCRISTINE
     Dosage: LAST DOSE PRIOR TO THE EVENT WAS 2 MG, DAY 1
     Route: 042
  6. DOXORUBICIN [Suspect]
     Active Substance: DOXORUBICIN
     Indication: Diffuse large B-cell lymphoma
     Route: 050
     Dates: start: 20230201
  7. TAFASITAMAB [Suspect]
     Active Substance: TAFASITAMAB
     Indication: Diffuse large B-cell lymphoma
     Dosage: LAST DOSE OF TAFASITAMAB PRIOR TO THE EVENT WAS RECEIVED ON 31-MAY-2023 AT DOSE OF 1063 MG
     Route: 042
  8. TAFASITAMAB [Suspect]
     Active Substance: TAFASITAMAB
     Dosage: LAST DOSE OF TAFASITAMAB PRIOR TO THE EVENT WAS RECEIVED ON 31-MAY-2023 AT DOSE OF 1063 MG
     Route: 042
     Dates: start: 20230201
  9. PREDNISOLONE [Suspect]
     Active Substance: PREDNISOLONE
     Indication: Diffuse large B-cell lymphoma
     Dosage: DAY 1 TO 5
     Route: 048
     Dates: start: 20230201
  10. LENALIDOMIDE [Suspect]
     Active Substance: LENALIDOMIDE
     Indication: Diffuse large B-cell lymphoma
     Dosage: THE LAST DOSE OF LENALIDOMIDE PRIOR TO THE EVENT WAS 10 MG.
     Route: 048
  11. LENALIDOMIDE [Suspect]
     Active Substance: LENALIDOMIDE
     Dosage: THE LAST DOSE OF LENALIDOMIDE PRIOR TO THE EVENT WAS 10 MG.
     Route: 048
     Dates: start: 20230201
  12. CYCLOPHOSPHAMIDE [Suspect]
     Active Substance: CYCLOPHOSPHAMIDE
     Indication: Diffuse large B-cell lymphoma
     Dosage: DAY 2
     Route: 042
     Dates: start: 20230201
  13. CYCLOPHOSPHAMIDE [Suspect]
     Active Substance: CYCLOPHOSPHAMIDE
     Dosage: THE LAST DOSE PRIOR TO THE EVENT WAS IV 1594.45 MG
     Route: 042
     Dates: start: 20230201, end: 20230517

REACTIONS (2)
  - Second primary malignancy [Recovered/Resolved]
  - Adenocarcinoma [Recovered/Resolved]

NARRATIVE: CASE EVENT DATE: 20231201
